FAERS Safety Report 8584683-0 (Version None)
Quarter: 2012Q3

REPORT INFORMATION
  Report Type: 
  Country: None (occurrence: None)
  Receive Date: 20120730
  Receipt Date: 20120720
  Transmission Date: 20120928
  Serious: Yes (Other)
  Sender: FDA-Public Use
  Company Number: DSA_58667_2012

PATIENT

DRUGS (7)
  1. IRINOTECAN HCL [Suspect]
     Indication: COLORECTAL CANCER
     Dosage: (180 MG/M2 INTRAVENOUS) (NOT OTHERWISE SPECIFIED))
     Route: 042
  2. GRANISETRON [Concomitant]
  3. DEXAMETHASONE [Concomitant]
  4. FLUOROURACIL [Suspect]
     Indication: COLORECTAL CANCER
     Dosage: (400 MG/M2 INTRAVENOUS BOLUS), (2400 MG/M2 INTRAVENOUS (NOT OTHERWISE SPECIFIED))
     Route: 040
  5. BEVACIZUMAB (BEVACIZUMAB) [Suspect]
     Indication: COLORECTAL CANCER
     Dosage: (5 MG/KG INTRAVENOUS) (NOT OTHERWISE SPECIFIED))
     Route: 042
  6. ONDANSETRON HYDROCHLORIDE [Concomitant]
  7. LEVOLEUCOVORIN CALCIUM [Suspect]
     Indication: COLORECTAL CANCER
     Dosage: (200 MG/M2 INTRAVENOUS) (NOT OTHERWISE SPECIFIED))
     Route: 042

REACTIONS (1)
  - ILEUS [None]
